FAERS Safety Report 16562764 (Version 1)
Quarter: 2019Q3

REPORT INFORMATION
  Report Type: Report from Study
  Country: RO (occurrence: RO)
  Receive Date: 20190711
  Receipt Date: 20190711
  Transmission Date: 20191004
  Serious: Yes (Death)
  Sender: FDA-Public Use
  Company Number: RO-MYLANLABS-2019M1065114

PATIENT
  Age: 72 Year
  Sex: Male
  Weight: 90 kg

DRUGS (3)
  1. TEGRETOL [Concomitant]
     Active Substance: CARBAMAZEPINE
     Indication: LUNG NEOPLASM MALIGNANT
     Dosage: UNK
  2. ERLOTINIB [Suspect]
     Active Substance: ERLOTINIB
     Indication: PRODUCT USED FOR UNKNOWN INDICATION
     Dosage: 150 MG, QD,THERAPY RESTARTED BUT DUE TO RECURRENCE OF EVENT (VOMITING) THE THERAPY WAS DISCONTINUED
     Route: 048
     Dates: start: 201707, end: 201707
  3. ERLOTINIB [Suspect]
     Active Substance: ERLOTINIB
     Dosage: 150 MG, QD,THERAPY INTERRUPTED FOR 2 DAYS DUE TO EVENTS
     Route: 048
     Dates: start: 201707, end: 201707

REACTIONS (4)
  - Death [Fatal]
  - Weight decreased [Unknown]
  - Malaise [Unknown]
  - Vomiting [Not Recovered/Not Resolved]
